FAERS Safety Report 6258115-1 (Version None)
Quarter: 2009Q3

REPORT INFORMATION
  Report Type: 
  Country: None (occurrence: None)
  Receive Date: 20090702
  Receipt Date: 20090702
  Transmission Date: 20100115
  Serious: Yes (Other)
  Sender: FDA-Public Use
  Company Number: None

PATIENT
  Age: 32 Month
  Sex: Female
  Weight: 13.7 kg

DRUGS (16)
  1. IRINOTECAN HCL [Suspect]
     Indication: NEUROBLASTOMA
     Dosage: 45 MG/M2/DAY IVP
     Route: 042
     Dates: start: 20090527, end: 20090531
  2. IRINOTECAN HCL [Suspect]
     Indication: NEUROBLASTOMA
     Dosage: 45 MG/M2/DAY IVP
     Route: 042
     Dates: start: 20090622, end: 20090626
  3. VELCADE [Suspect]
     Indication: NEUROBLASTOMA
     Dosage: 1.2 MG/M2/DAY
     Dates: start: 20090527
  4. VELCADE [Suspect]
     Indication: NEUROBLASTOMA
     Dosage: 1.2 MG/M2/DAY
     Dates: start: 20090530
  5. VELCADE [Suspect]
     Indication: NEUROBLASTOMA
     Dosage: 1.2 MG/M2/DAY
     Dates: start: 20090603
  6. VELCADE [Suspect]
     Indication: NEUROBLASTOMA
     Dosage: 1.2 MG/M2/DAY
     Dates: start: 20090606
  7. VELCADE [Suspect]
     Indication: NEUROBLASTOMA
     Dosage: 1.2 MG/M2/DAY
     Dates: start: 20090622
  8. VELCADE [Suspect]
     Indication: NEUROBLASTOMA
     Dosage: 1.2 MG/M2/DAY
     Dates: start: 20090625
  9. ACETAMINOPHEN AND CODEINE PHOSPHATE [Concomitant]
  10. ACYCLOVIR [Concomitant]
  11. DIPHENHYDRAMINE HCL [Concomitant]
  12. ONDANSETRON [Concomitant]
  13. HEPARIN (PORCINE) (HEPARIN FLUSH) [Concomitant]
  14. HYOSCYAMINE SULFATE SL [Concomitant]
  15. LOPERAMIDE HYDROCHLORIDE [Concomitant]
  16. LORAZEPAM [Concomitant]

REACTIONS (4)
  - AGITATION [None]
  - ATAXIA [None]
  - GAIT DISTURBANCE [None]
  - IRRITABILITY [None]
